FAERS Safety Report 13057982 (Version 1)
Quarter: 2016Q4

REPORT INFORMATION
  Report Type: Spontaneous
  Country: US (occurrence: US)
  Receive Date: 20161223
  Receipt Date: 20161223
  Transmission Date: 20170207
  Serious: No
  Sender: FDA-Public Use
  Company Number: PHEH2016US033261

PATIENT
  Age: 35 Year
  Sex: Male

DRUGS (1)
  1. OCTREOTIDE. [Suspect]
     Active Substance: OCTREOTIDE
     Indication: CARCINOID SYNDROME
     Dosage: UNK UNK, BID
     Route: 058

REACTIONS (3)
  - Headache [Recovered/Resolved]
  - Vomiting [Unknown]
  - Nausea [Unknown]
